FAERS Safety Report 7973063-4 (Version None)
Quarter: 2011Q4

REPORT INFORMATION
  Report Type: 
  Country: None (occurrence: None)
  Receive Date: 20111213
  Receipt Date: 20111130
  Transmission Date: 20120403
  Serious: Yes (Other)
  Sender: FDA-Public Use
  Company Number: TR-COVIDIEN/TYCO HEALTHCARE/MALLINCKRODT-T201102835

PATIENT
  Age: 65 Year
  Sex: Female

DRUGS (2)
  1. PROPYLTHIOURACIL [Concomitant]
     Indication: THYROID THERAPY
     Dosage: UNK
  2. SODIUM IODIDE I 131 [Suspect]
     Indication: TOXIC NODULAR GOITRE
     Dosage: 740 MBQ, SINGLE

REACTIONS (1)
  - DRUG INEFFECTIVE [None]
